FAERS Safety Report 24089324 (Version 1)
Quarter: 2024Q3

REPORT INFORMATION
  Report Type: Spontaneous
  Country: US (occurrence: US)
  Receive Date: 20240715
  Receipt Date: 20240715
  Transmission Date: 20241017
  Serious: No
  Sender: AMNEAL
  Company Number: US-AMNEAL PHARMACEUTICALS-2023-AMRX-02584

PATIENT
  Age: 80 Year

DRUGS (1)
  1. DIVALPROEX SODIUM [Suspect]
     Active Substance: DIVALPROEX SODIUM
     Indication: Product used for unknown indication
     Dosage: TABLET
     Route: 048

REACTIONS (2)
  - Peripheral swelling [Unknown]
  - Alopecia [Unknown]
